FAERS Safety Report 5958073-0 (Version None)
Quarter: 2008Q4

REPORT INFORMATION
  Report Type: 
  Country: None (occurrence: None)
  Receive Date: 20081119
  Receipt Date: 20081113
  Transmission Date: 20090506
  Serious: Yes (Life-Threatening, Hospitalization)
  Sender: FDA-Public Use
  Company Number: B0532792A

PATIENT
  Age: 75 Year
  Sex: Female

DRUGS (14)
  1. SEREVENT [Suspect]
     Indication: ASTHMA
     Dosage: 50MCG VARIABLE DOSE
     Route: 055
     Dates: start: 20040101
  2. FLUTIDE [Concomitant]
     Route: 055
  3. MEVALOTIN [Concomitant]
     Indication: DRUG USE FOR UNKNOWN INDICATION
     Dosage: .5MG PER DAY
     Route: 048
     Dates: end: 20080801
  4. UNIPHYL [Concomitant]
     Dosage: 400MG PER DAY
     Route: 048
  5. CALCIUM LACTATE [Concomitant]
     Dosage: 2G PER DAY
     Route: 048
  6. PREDONINE [Concomitant]
     Dosage: 5MG PER DAY
     Route: 048
  7. MAGNESIUM OXIDE [Concomitant]
     Dosage: 1.98G PER DAY
     Route: 048
  8. MUCOSOLVAN [Concomitant]
     Route: 048
  9. GASTER D [Concomitant]
     Dosage: 40MG PER DAY
     Route: 048
  10. ALLEGRA [Concomitant]
     Dosage: 120MG PER DAY
     Route: 048
  11. SINGULAIR [Concomitant]
     Dosage: 10MG PER DAY
     Route: 048
  12. URALYT [Concomitant]
     Route: 048
  13. URINORM [Concomitant]
     Route: 048
  14. MEPTIN [Concomitant]
     Route: 055

REACTIONS (2)
  - HYPOKALAEMIA [None]
  - RHABDOMYOLYSIS [None]
